FAERS Safety Report 9111826 (Version 1)
Quarter: 2013Q1

REPORT INFORMATION
  Report Type: Spontaneous
  Country: US (occurrence: US)
  Receive Date: 20130219
  Receipt Date: 20130219
  Transmission Date: 20140127
  Serious: No
  Sender: FDA-Public Use
  Company Number: US-BRISTOL-MYERS SQUIBB COMPANY-16451643

PATIENT
  Age: 65 Year
  Sex: Female

DRUGS (10)
  1. ORENCIA [Suspect]
  2. NORVASC [Concomitant]
  3. LASIX [Concomitant]
  4. PRAVASTATINE [Concomitant]
  5. SYNTHROID [Concomitant]
     Indication: THYROID DISORDER
  6. SYMBICORT [Concomitant]
  7. SINGULAIR [Concomitant]
  8. PROAIR HFA [Concomitant]
  9. TOPROL XL [Concomitant]
  10. QUINAPRIL HCL [Concomitant]

REACTIONS (2)
  - Chronic obstructive pulmonary disease [Unknown]
  - Asthma [Unknown]
